FAERS Safety Report 4847706-8 (Version None)
Quarter: 2005Q4

REPORT INFORMATION
  Report Type: 
  Country: None (occurrence: None)
  Receive Date: 20051205
  Receipt Date: 20041122
  Transmission Date: 20060501
  Serious: Yes (Hospitalization)
  Sender: FDA-Public Use
  Company Number: PHBS2004MX15960

PATIENT
  Age: 17 Year
  Sex: Female

DRUGS (8)
  1. NAPROXEN + PARACETAMOL (NGX) (NAPROXEN, PARACETAMOL) [Suspect]
     Dosage: ORAL
     Route: 048
  2. SERVICEF (CEFALEXIN) [Concomitant]
  3. CEFUROXIME [Concomitant]
  4. RANITIDINE [Concomitant]
  5. METOCLOPRAMIDE [Concomitant]
  6. NIMESULIDE (NIMESULIDE) [Concomitant]
  7. NAPROXEN [Concomitant]
  8. ACETAMINOPHEN [Concomitant]

REACTIONS (1)
  - STEVENS-JOHNSON SYNDROME [None]
